FAERS Safety Report 13917623 (Version 4)
Quarter: 2017Q4

REPORT INFORMATION
  Report Type: Report from Study
  Country: US (occurrence: US)
  Receive Date: 20170829
  Receipt Date: 20171011
  Transmission Date: 20180320
  Serious: Yes (Death, Hospitalization, Other)
  Sender: FDA-Public Use
  Company Number: US-009507513-1708USA010253

PATIENT
  Age: 83 Year
  Sex: Female

DRUGS (6)
  1. KEYTRUDA [Suspect]
     Active Substance: PEMBROLIZUMAB
     Indication: SARCOMA METASTATIC
     Dosage: 93 MG, ONCE (ONE DOSE)
     Route: 042
     Dates: start: 20170731, end: 20170731
  2. IBUPROFEN. [Suspect]
     Active Substance: IBUPROFEN
     Dosage: UNK
  3. BENGAY (CAMPHOR (+) MENTHOL (+) METHYL SALICYLATE) [Concomitant]
     Dosage: UNK
  4. LIDOCAINE HYDROCHLORIDE. [Concomitant]
     Active Substance: LIDOCAINE HYDROCHLORIDE
     Dosage: UNK
  5. MEGESTROL ACETATE. [Concomitant]
     Active Substance: MEGESTROL ACETATE
     Dosage: UNK
  6. FERROUS SULFATE. [Concomitant]
     Active Substance: FERROUS SULFATE
     Dosage: UNK

REACTIONS (9)
  - Sepsis [Unknown]
  - Syncope [Unknown]
  - Pleural disorder [Unknown]
  - Gastrointestinal haemorrhage [Recovered/Resolved]
  - Off label use [Unknown]
  - Hypophagia [Unknown]
  - Hypertension [Unknown]
  - Acute respiratory failure [Fatal]
  - Craniocerebral injury [Unknown]

NARRATIVE: CASE EVENT DATE: 2017
